FAERS Safety Report 25388215 (Version 1)
Quarter: 2025Q2

REPORT INFORMATION
  Report Type: Spontaneous
  Country: JP (occurrence: JP)
  Receive Date: 20250603
  Receipt Date: 20250603
  Transmission Date: 20250716
  Serious: No
  Sender: ALKEM
  Company Number: JP-ALKEM LABORATORIES LIMITED-JP-ALKEM-2025-04130

PATIENT
  Age: 3 Month
  Sex: Female
  Weight: 7.7 kg

DRUGS (7)
  1. VANCOMYCIN [Suspect]
     Active Substance: VANCOMYCIN
     Indication: Staphylococcal infection
     Dosage: 120 MILLIGRAM, QID (EVERY 6 HOURS) (ON DAY 2)
     Route: 042
  2. VANCOMYCIN [Suspect]
     Active Substance: VANCOMYCIN
     Dosage: 120 MILLIGRAM, QID (EVERY 6 HOURS) (RESUMED AS OF DAY 7 OF ADMISSION TO16)
     Route: 042
  3. VANCOMYCIN [Suspect]
     Active Substance: VANCOMYCIN
     Route: 037
  4. VANCOMYCIN [Suspect]
     Active Substance: VANCOMYCIN
  5. VANCOMYCIN [Suspect]
     Active Substance: VANCOMYCIN
  6. MEROPENEM [Concomitant]
     Active Substance: MEROPENEM
     Indication: Klebsiella infection
     Dosage: 300 MILLIGRAM, TID (EVERY 8 HOURS) (ON DAY 2-14)
     Route: 042
  7. MEROPENEM [Concomitant]
     Active Substance: MEROPENEM
     Route: 042

REACTIONS (1)
  - Drug ineffective [Unknown]
